FAERS Safety Report 9292722 (Version 2)
Quarter: 2013Q3

REPORT INFORMATION
  Report Type: Spontaneous
  Country: US (occurrence: US)
  Receive Date: 20130516
  Receipt Date: 20130724
  Transmission Date: 20140515
  Serious: No
  Sender: FDA-Public Use
  Company Number: US-PFIZER INC-2013148670

PATIENT
  Age: 71 Year
  Sex: Female
  Weight: 97 kg

DRUGS (5)
  1. ZIPRASIDONE HCL [Suspect]
     Indication: SCHIZOPHRENIA
     Dosage: 40 MG, 2X/DAY
     Route: 048
  2. ZIPRASIDONE HCL [Suspect]
     Dosage: 40 MG, 1X/DAY
     Route: 048
     Dates: end: 201302
  3. TRIHEXYPHENIDYL [Concomitant]
     Dosage: UNK
  4. SERTRALINE [Concomitant]
     Dosage: UNK
  5. DIAZEPAM [Concomitant]
     Dosage: UNK

REACTIONS (4)
  - Arthralgia [Unknown]
  - Sedation [Unknown]
  - Confusional state [Unknown]
  - Drug intolerance [Unknown]
